FAERS Safety Report 4478263-6 (Version None)
Quarter: 2004Q4

REPORT INFORMATION
  Report Type: 
  Country: None (occurrence: None)
  Receive Date: 20041018
  Receipt Date: 20041018
  Transmission Date: 20050328
  Serious: Yes (Other)
  Sender: FDA-Public Use
  Company Number: None

PATIENT
  Age: 74 Year
  Sex: Male
  Weight: 95.709 kg

DRUGS (1)
  1. FLUVASTATIN 20 MG [Suspect]
     Indication: HYPERLIPIDAEMIA
     Dosage: 1 PO HS
     Route: 048

REACTIONS (1)
  - DIARRHOEA [None]
